FAERS Safety Report 7808760-4 (Version None)
Quarter: 2011Q4

REPORT INFORMATION
  Report Type: 
  Country: None (occurrence: None)
  Receive Date: 20111012
  Receipt Date: 20111003
  Transmission Date: 20120403
  Serious: Yes (Hospitalization, Other)
  Sender: FDA-Public Use
  Company Number: FR-AMGEN-FRASP2011046849

PATIENT
  Age: 65 Year
  Sex: Male
  Weight: 64.9 kg

DRUGS (6)
  1. PIROXICAM [Concomitant]
     Indication: ANKYLOSING SPONDYLITIS
     Dosage: 20 MG, 1X/DAY AT MIDDAY
  2. ACETAMINOPHEN [Concomitant]
     Indication: ANKYLOSING SPONDYLITIS
     Dosage: 2000 MG, 2X/DAY
     Route: 048
  3. ENBREL [Suspect]
     Indication: ANKYLOSING SPONDYLITIS
     Dosage: 50 MG, WEEKLY
     Route: 058
     Dates: start: 20110723, end: 20110730
  4. BREXIN                             /00500404/ [Concomitant]
     Indication: ANKYLOSING SPONDYLITIS
     Dosage: 20 MG, 1X/DAY AT MIDDAY
  5. NEXIUM [Concomitant]
     Dosage: 20 MG, 1X/DAY IN THE EVENING
  6. NEXIUM [Concomitant]
     Dosage: 20 MG, 1X/DAY IN THE EVENING

REACTIONS (4)
  - APPENDICEAL ABSCESS [None]
  - LYMPHADENOPATHY [None]
  - INFECTIOUS PERITONITIS [None]
  - APPENDICITIS [None]
